FAERS Safety Report 9189268 (Version 1)
Quarter: 2013Q1

REPORT INFORMATION
  Report Type: Spontaneous
  Country: US (occurrence: None)
  Receive Date: 20130321
  Receipt Date: 20130321
  Transmission Date: 20140127
  Serious: Yes (Other)
  Sender: FDA-Public Use
  Company Number: None

PATIENT
  Sex: Male
  Weight: 51.4 kg

DRUGS (11)
  1. VARENICLINE [Suspect]
     Indication: SMOKING CESSATION THERAPY
     Dosage: 0.5MG Q.D. D1-3, BID 4-7
     Route: 048
     Dates: start: 20130117, end: 20130123
  2. VARENICLINE [Suspect]
     Indication: SMOKING CESSATION THERAPY
     Dosage: 1.0MG BID D8-D43 ORAL
     Route: 048
     Dates: start: 20130124
  3. PREZISTA -DARUNAVIR- [Concomitant]
  4. TRUVADA -TENOFOVIR + EMTRICITABINE- [Concomitant]
  5. NORVIR (RITONAVIR) [Concomitant]
  6. LISINOPRIL [Concomitant]
  7. AMLODIPINE [Concomitant]
  8. HYDROCHLOROTHIAZIDE [Concomitant]
  9. METOPROLOL [Concomitant]
  10. ACETAMINOPHEN W/CODEINE [Concomitant]
  11. NAPROXEN [Concomitant]

REACTIONS (1)
  - Neoplasm malignant [None]
